FAERS Safety Report 8546584-3 (Version None)
Quarter: 2012Q3

REPORT INFORMATION
  Report Type: 
  Country: None (occurrence: None)
  Receive Date: 20120727
  Receipt Date: 20111228
  Transmission Date: 20120928
  Serious: No
  Sender: FDA-Public Use
  Company Number: US-ASTRAZENECA-2011SE78802

PATIENT
  Age: 16688 Day
  Sex: Male

DRUGS (15)
  1. HYDROCODONE BITARTRATE AND ACETAMINOPHEN [Concomitant]
     Dosage: 5MG/500MG TAKE 1 TABLET EVERY 4 HOUR AND PRN
     Route: 048
     Dates: start: 20030108
  2. AMBIEN [Concomitant]
     Route: 048
     Dates: start: 20010124
  3. ZYPREXA [Concomitant]
     Dates: end: 20011129
  4. LEXAPRO [Concomitant]
     Route: 048
     Dates: start: 20030108
  5. VOLTAREN [Concomitant]
     Route: 048
     Dates: start: 20010124
  6. ATIVAN [Concomitant]
     Dates: start: 20011129
  7. PREVACID [Concomitant]
     Dates: start: 20010124
  8. RITALIN [Concomitant]
     Route: 048
     Dates: start: 20021108
  9. PROVIGIL [Concomitant]
     Route: 048
     Dates: start: 20030108
  10. PRILOSEC [Concomitant]
     Dates: start: 20011129
  11. SEROQUEL [Suspect]
     Route: 048
     Dates: start: 20011129
  12. EFFEXOR XR [Concomitant]
     Route: 048
     Dates: start: 20010124
  13. DEPAKOTE [Concomitant]
     Dosage: 250 MG TO 500 MG BID
     Dates: start: 20010124
  14. AMBIEN [Concomitant]
     Route: 048
     Dates: start: 20011129
  15. ATIVAN [Concomitant]
     Dates: start: 20010124

REACTIONS (6)
  - TYPE 2 DIABETES MELLITUS [None]
  - OBESITY [None]
  - PERIPHERAL VASCULAR DISORDER [None]
  - HYPERTRIGLYCERIDAEMIA [None]
  - HYPERCHOLESTEROLAEMIA [None]
  - ATTENTION DEFICIT/HYPERACTIVITY DISORDER [None]
